FAERS Safety Report 21951944 (Version 1)
Quarter: 2023Q1

REPORT INFORMATION
  Report Type: Report from Study
  Country: US (occurrence: US)
  Receive Date: 20230203
  Receipt Date: 20230203
  Transmission Date: 20230417
  Serious: No
  Sender: FDA-Public Use
  Company Number: US-EXELIXIS-CABO-21047719

PATIENT
  Sex: Male

DRUGS (5)
  1. CABOMETYX [Suspect]
     Active Substance: CABOZANTINIB S-MALATE
     Indication: Renal cancer
     Dosage: 40 MG, QD
     Route: 048
     Dates: start: 20211202
  2. CABOMETYX [Suspect]
     Active Substance: CABOZANTINIB S-MALATE
     Dosage: 60 MG, QOD
     Route: 048
  3. CABOMETYX [Suspect]
     Active Substance: CABOZANTINIB S-MALATE
     Dosage: 60 MG, QD
     Route: 048
  4. CABOMETYX [Suspect]
     Active Substance: CABOZANTINIB S-MALATE
     Dosage: 40 MG, QD
     Route: 048
     Dates: start: 202202
  5. CABOMETYX [Suspect]
     Active Substance: CABOZANTINIB S-MALATE
     Dosage: 40 MG 2 WEEKS ON AND 2 WEEKS OFF
     Route: 048

REACTIONS (12)
  - Abdominal discomfort [Unknown]
  - Skin lesion [Unknown]
  - Skin fissures [Unknown]
  - Renal function test abnormal [Unknown]
  - Hair colour changes [Unknown]
  - Skin ulcer [Unknown]
  - Nausea [Unknown]
  - Dysgeusia [Unknown]
  - Stomatitis [Unknown]
  - Dry skin [Unknown]
  - Rash [Unknown]
  - Inappropriate schedule of product administration [Unknown]
